FAERS Safety Report 10371379 (Version 6)
Quarter: 2014Q4

REPORT INFORMATION
  Report Type: Report from Study
  Country: ES (occurrence: ES)
  Receive Date: 20140808
  Receipt Date: 20141218
  Transmission Date: 20150528
  Serious: Yes (Hospitalization, Other)
  Sender: FDA-Public Use
  Company Number: ES-AMGEN-ESPSP2014059388

PATIENT
  Age: 87 Year
  Sex: Female
  Weight: 66 kg

DRUGS (15)
  1. IDAPTAN [Concomitant]
     Dosage: 20 MG, QD
     Dates: start: 201305
  2. FUROSEMIDA SANDOZ [Suspect]
     Active Substance: FUROSEMIDE
     Indication: OEDEMA
     Dosage: 40 MG, QD
     Route: 048
     Dates: start: 20140117, end: 20140908
  3. AMOXICILLIN. [Suspect]
     Active Substance: AMOXICILLIN
     Indication: CELLULITIS
     Dosage: 500 UNK, Q8H
     Route: 048
     Dates: start: 20140821, end: 20140826
  4. PARACETAMOL KERN PHARMA [Concomitant]
     Dosage: 1 G, QD
     Dates: start: 201305
  5. ALOPURINOL NORMON [Concomitant]
     Dosage: 100 MG, QD
     Dates: start: 201305
  6. ALDACTONE [Suspect]
     Active Substance: SPIRONOLACTONE
     Indication: OEDEMA
     Dosage: 25 MG, QD
     Route: 048
     Dates: start: 20140821, end: 20140908
  7. LOVASTATINA KERN [Concomitant]
     Dosage: 20 MG, QD
     Dates: start: 201305
  8. BISOPROLOL [Concomitant]
     Active Substance: BISOPROLOL
     Indication: HYPERTENSION
     Dosage: 2.5 MG, QD
     Route: 048
     Dates: start: 20140821
  9. ARANESP [Suspect]
     Active Substance: DARBEPOETIN ALFA
     Indication: CHRONIC KIDNEY DISEASE
     Dosage: 60 MCG, UNK
     Route: 058
     Dates: start: 20130806
  10. INSULATARD HUMAN [Concomitant]
     Dosage: 100 IU/ML, UNK
     Dates: start: 201305
  11. ROCALTROL [Concomitant]
     Active Substance: CALCITRIOL
     Dosage: .25 MUG, UNK
     Dates: start: 201305
  12. UNIKET [Concomitant]
     Active Substance: ISOSORBIDE MONONITRATE
     Dosage: 20 MG, UNK
     Dates: start: 201401
  13. CARDURA [Suspect]
     Active Substance: DOXAZOSIN MESYLATE
     Indication: HYPERTENSION
     Dosage: 4 MG, QD
     Route: 048
     Dates: start: 20140117, end: 20140908
  14. ACFOL [Concomitant]
     Active Substance: FOLIC ACID
     Dosage: UNK UNK, QD
     Dates: start: 201403
  15. HYDRAPRES [Concomitant]
     Dosage: 25 MG, Q8H
     Dates: start: 201401

REACTIONS (10)
  - Hospitalisation [Unknown]
  - Herpes zoster [Unknown]
  - Gait disturbance [Unknown]
  - Breast mass [Unknown]
  - Neuralgia [Unknown]
  - Tooth abscess [Unknown]
  - Tremor [Not Recovered/Not Resolved]
  - Diarrhoea [Recovered/Resolved]
  - Hyperglycaemia [Unknown]
  - Myoclonus [Unknown]

NARRATIVE: CASE EVENT DATE: 201407
